FAERS Safety Report 8505987-3 (Version None)
Quarter: 2012Q3

REPORT INFORMATION
  Report Type: 
  Country: None (occurrence: None)
  Receive Date: 20120712
  Receipt Date: 20120702
  Transmission Date: 20120928
  Serious: Yes (Death, Life-Threatening, Hospitalization)
  Sender: FDA-Public Use
  Company Number: FR-GLAXOSMITHKLINE-B0811774A

PATIENT
  Sex: Female
  Weight: 40 kg

DRUGS (11)
  1. TOCILIZUMAB [Concomitant]
     Dosage: 320MG MONTHLY
     Dates: start: 20120110
  2. OXYGEN THERAPY [Concomitant]
  3. SOLU-MEDROL [Concomitant]
     Dosage: 500MG TWICE PER DAY
  4. LEVOFLOXACIN [Concomitant]
  5. CACIT D3 [Concomitant]
  6. ZOVIRAX [Concomitant]
     Indication: HERPES SIMPLEX
     Dates: start: 20120222, end: 20120302
  7. ARIXTRA [Suspect]
     Indication: THROMBOPHLEBITIS
     Dosage: 5MG PER DAY
     Route: 058
     Dates: start: 20120207, end: 20120305
  8. LOVENOX [Concomitant]
     Route: 058
  9. PREDNISONE TAB [Concomitant]
     Route: 048
  10. FLUCONAZOLE [Concomitant]
     Indication: HERPES SIMPLEX
     Dates: start: 20120101, end: 20120101
  11. FLAGYL [Concomitant]

REACTIONS (7)
  - RENAL FAILURE [None]
  - ABDOMINAL PAIN [None]
  - COMA [None]
  - RETROPERITONEAL HAEMATOMA [None]
  - COGNITIVE DISORDER [None]
  - ANAEMIA [None]
  - INCORRECT DRUG ADMINISTRATION DURATION [None]
